FAERS Safety Report 19589517 (Version 2)
Quarter: 2024Q4

REPORT INFORMATION
  Report Type: Report from Study
  Country: CA (occurrence: CA)
  Receive Date: 20210721
  Receipt Date: 20241011
  Transmission Date: 20250115
  Serious: Yes (Other)
  Sender: PFIZER
  Company Number: CA-PFIZER INC-2021868890

PATIENT
  Sex: Female

DRUGS (19)
  1. XELJANZ [Suspect]
     Active Substance: TOFACITINIB CITRATE
     Dosage: 5 MG, 2X/DAY
     Route: 048
  2. METHOTREXATE SODIUM [Suspect]
     Active Substance: METHOTREXATE SODIUM
     Dosage: 20 MG, WEEKLY
     Route: 065
  3. RITUXIMAB [Suspect]
     Active Substance: RITUXIMAB
     Indication: Rheumatoid arthritis
     Route: 065
  4. RITUXIMAB [Suspect]
     Active Substance: RITUXIMAB
     Indication: Rheumatoid arthritis
     Dosage: 1000 MG, CYCLIC  1 EVERY 15 DAYS
     Route: 042
  5. ARAVA [Suspect]
     Active Substance: LEFLUNOMIDE
     Dosage: 20 MG, 1X/DAY
     Route: 065
  6. RINVOQ [Suspect]
     Active Substance: UPADACITINIB
     Dosage: UNK
     Route: 065
  7. ACETAMINOPHEN [Concomitant]
     Active Substance: ACETAMINOPHEN
     Indication: Premedication
     Dosage: 325 MG
     Route: 048
  8. CHOLECALCIFEROL [Concomitant]
     Active Substance: CHOLECALCIFEROL
     Dosage: 25 MG
     Route: 048
  9. DIPHENHYDRAMINE HYDROCHLORIDE [Concomitant]
     Active Substance: DIPHENHYDRAMINE HYDROCHLORIDE
     Indication: Premedication
     Dosage: 25 MG
     Route: 048
  10. DOCONEXENT\ICOSAPENT [Concomitant]
     Active Substance: DOCONEXENT\ICOSAPENT
  11. IBUPROFEN [Concomitant]
     Active Substance: IBUPROFEN
     Dosage: 400 MG
     Route: 048
  12. METHYLPREDNISOLONE [Concomitant]
     Active Substance: METHYLPREDNISOLONE
     Indication: Premedication
     Dosage: 100 MG
     Route: 042
  13. NYSTATIN [Concomitant]
     Active Substance: NYSTATIN
     Dosage: 5 ML, 3X/DAY
     Route: 048
  14. PREDNISONE [Concomitant]
     Active Substance: PREDNISONE
     Dosage: 2 DF, 1X/DAY
     Route: 048
  15. VALTREX [Concomitant]
     Active Substance: VALACYCLOVIR HYDROCHLORIDE
     Indication: Herpes zoster
     Dosage: 1000 MG, 3X/DAY
     Route: 048
  16. VITAMIN C [Concomitant]
     Active Substance: ASCORBIC ACID
     Dosage: 1000 MG
     Route: 065
  17. ZOPICLONE [Concomitant]
     Active Substance: ZOPICLONE
     Dosage: 0.5 DF, 1X/DAY
     Route: 048
  18. DOCONEXENT\ICOSAPENT [Concomitant]
     Active Substance: DOCONEXENT\ICOSAPENT
  19. VALACYCLOVIR HYDROCHLORIDE [Concomitant]
     Active Substance: VALACYCLOVIR HYDROCHLORIDE
     Indication: Herpes zoster
     Dosage: 1000 MG, 3X/DAY
     Route: 048

REACTIONS (17)
  - Atrial fibrillation [Unknown]
  - Breast mass [Unknown]
  - Carotid artery stenosis [Unknown]
  - Cataract [Unknown]
  - Contrast media allergy [Unknown]
  - Drug hypersensitivity [Unknown]
  - Drug ineffective [Unknown]
  - Gastric polyps [Unknown]
  - Gastrointestinal disorder [Unknown]
  - Herpes zoster [Unknown]
  - Hiatus hernia [Unknown]
  - Ill-defined disorder [Unknown]
  - Neuropathy peripheral [Unknown]
  - Osteoporosis [Unknown]
  - Otitis media [Unknown]
  - Tympanic membrane perforation [Unknown]
  - Urosepsis [Unknown]
